FAERS Safety Report 5395932-4 (Version None)
Quarter: 2007Q3

REPORT INFORMATION
  Report Type: 
  Country: None (occurrence: None)
  Receive Date: 20070724
  Receipt Date: 20070713
  Transmission Date: 20080115
  Serious: Yes (Other)
  Sender: FDA-Public Use
  Company Number: US-PFIZER INC-2007056369

PATIENT
  Sex: Female

DRUGS (3)
  1. AMLODIPINE [Suspect]
     Indication: HYPERTENSION
     Route: 048
     Dates: start: 20070706, end: 20070701
  2. PLAVIX [Concomitant]
     Dosage: DAILY DOSE:75MG
     Route: 048
  3. CRESTOR [Concomitant]
     Dosage: DAILY DOSE:10MG
     Route: 048

REACTIONS (2)
  - FEELING ABNORMAL [None]
  - HYPERTENSION [None]
